FAERS Safety Report 4438827-2 (Version None)
Quarter: 2004Q3

REPORT INFORMATION
  Report Type: 
  Country: None (occurrence: None)
  Receive Date: 20040830
  Receipt Date: 20040817
  Transmission Date: 20050211
  Serious: Yes (Other)
  Sender: FDA-Public Use
  Company Number: 2004-03653

PATIENT
  Age: 73 Year
  Sex: Male

DRUGS (14)
  1. NITROFURANTOIN [Suspect]
     Indication: URINARY TRACT INFECTION
     Dosage: 50 MG, DAILY, ORAL
     Route: 048
  2. FLUCONAZOLE [Suspect]
     Indication: PARONYCHIA
     Dosage: 150 MG, 1/WEEK
  3. TERAZOSIN (TERAZOSIN) [Concomitant]
  4. CIMETIDINE [Concomitant]
  5. FLUTICASONE (FLUTICASONE) NASAL SPRAY [Concomitant]
  6. DIPHENHYDRAMINE HCL [Concomitant]
  7. IBUPROFEN [Concomitant]
  8. FLUOCINONIDE OINTMENT [Concomitant]
  9. CENTRUM SILVER (TOCOPHERYL ACETATE, RETINOL, ZINC, MINERALS NOS,VITAMI [Concomitant]
  10. VITAMIN E [Concomitant]
  11. CALCIUM WITH VITAMIN D (ERGOCALCIFEROL, CALCIUM PHOSPHATE, CALCIUM SOD [Concomitant]
  12. ACETYLSALICYLIC ACID ENTERIC COATED (ACETYLSALICYLIC ACID) [Concomitant]
  13. CALCIUM POLYCARBOPHIL [Concomitant]
  14. DOCUSATE SODIUM [Concomitant]

REACTIONS (3)
  - DRUG INTERACTION [None]
  - HEPATIC ENZYME INCREASED [None]
  - PULMONARY TOXICITY [None]
